FAERS Safety Report 11217706 (Version 1)
Quarter: 2015Q2

REPORT INFORMATION
  Report Type: Spontaneous
  Country: US (occurrence: None)
  Receive Date: 20150624
  Receipt Date: 20150624
  Transmission Date: 20150821
  Serious: Yes (Hospitalization)
  Sender: FDA-Public Use
  Company Number: None

PATIENT
  Age: 68 Year
  Sex: Male
  Weight: 107.6 kg

DRUGS (1)
  1. LISINOPRIL. [Suspect]
     Active Substance: LISINOPRIL
     Indication: HYPERTENSION
     Dosage: LISINOPRIL 20MG MG, EVERY DAY, PO
     Route: 048
     Dates: start: 20130610, end: 20150608

REACTIONS (3)
  - Hyperglycaemia [None]
  - Vision blurred [None]
  - Anaphylactic reaction [None]

NARRATIVE: CASE EVENT DATE: 20150608
